FAERS Safety Report 5206529-0 (Version None)
Quarter: 2006Q4

REPORT INFORMATION
  Report Type: 
  Country: None (occurrence: None)
  Receive Date: 20061026
  Receipt Date: 20060826
  Transmission Date: 20070319
  Serious: No
  Sender: FDA-Public Use
  Company Number: 2006105399

PATIENT
  Sex: Female

DRUGS (2)
  1. LYRICA [Suspect]
     Indication: PAIN
     Dosage: (2 IN 1 D)
     Dates: start: 20060825, end: 20060825
  2. LYRICA [Suspect]
     Indication: PARAESTHESIA
     Dosage: (2 IN 1 D)
     Dates: start: 20060825, end: 20060825

REACTIONS (8)
  - BALANCE DISORDER [None]
  - DISTURBANCE IN ATTENTION [None]
  - DRUG INEFFECTIVE [None]
  - EYE DISORDER [None]
  - FEELING ABNORMAL [None]
  - PAIN [None]
  - SPEECH DISORDER [None]
  - VISION BLURRED [None]
